FAERS Safety Report 25180730 (Version 1)
Quarter: 2025Q2

REPORT INFORMATION
  Report Type: Report from Study
  Country: IT (occurrence: IT)
  Receive Date: 20250409
  Receipt Date: 20250409
  Transmission Date: 20250717
  Serious: Yes (Other)
  Sender: ELI LILLY AND CO
  Company Number: IT-ELI_LILLY_AND_COMPANY-IT202504002243

PATIENT

DRUGS (1)
  1. OLUMIANT [Suspect]
     Active Substance: BARICITINIB
     Indication: VEXAS syndrome
     Dosage: 4 MG, DAILY
     Route: 065

REACTIONS (3)
  - Sepsis [Unknown]
  - Disseminated intravascular coagulation [Unknown]
  - Off label use [Unknown]
